FAERS Safety Report 15371050 (Version 2)
Quarter: 2018Q4

REPORT INFORMATION
  Report Type: Report from Study
  Country: CA (occurrence: CA)
  Receive Date: 20180911
  Receipt Date: 20181003
  Transmission Date: 20190204
  Serious: Yes (Hospitalization, Other)
  Sender: FDA-Public Use
  Company Number: CA-GLAXOSMITHKLINE-CA2018GSK162776

PATIENT
  Sex: Female
  Weight: 71 kg

DRUGS (1)
  1. MEPOLIZUMAB [Suspect]
     Active Substance: MEPOLIZUMAB
     Indication: ASTHMA
     Dosage: 100 MG, Z, MONTHLY
     Route: 042

REACTIONS (4)
  - Disease recurrence [Recovering/Resolving]
  - Myocardial infarction [Unknown]
  - Oedema peripheral [Recovering/Resolving]
  - Asthma [Unknown]
